FAERS Safety Report 15582080 (Version 1)
Quarter: 2018Q4

REPORT INFORMATION
  Report Type: Spontaneous
  Country: US (occurrence: US)
  Receive Date: 20181105
  Receipt Date: 20181105
  Transmission Date: 20190205
  Serious: No
  Sender: FDA-Public Use
  Company Number: US-TEVA-2018-US-967580

PATIENT
  Sex: Female
  Weight: 61.29 kg

DRUGS (1)
  1. ESTRADIOL ACTAVIS [Suspect]
     Active Substance: ESTRADIOL
     Route: 065

REACTIONS (5)
  - Chills [Unknown]
  - Presyncope [Unknown]
  - Gastric disorder [Unknown]
  - Product substitution issue [Unknown]
  - Adverse event [Unknown]
